FAERS Safety Report 17070885 (Version 3)
Quarter: 2019Q4

REPORT INFORMATION
  Report Type: Spontaneous
  Country: JP (occurrence: JP)
  Receive Date: 20191125
  Receipt Date: 20191204
  Transmission Date: 20200122
  Serious: Yes (Other)
  Sender: FDA-Public Use
  Company Number: JP-PFIZER INC-2019501797

PATIENT
  Age: 64 Year
  Sex: Female

DRUGS (5)
  1. CAPECITABINE. [Concomitant]
     Active Substance: CAPECITABINE
     Dosage: UNK, CYCLIC (REINITIATED, CONTINUED FOR 48 CYCLES OVER APPROXIMATELY 2.5 YEARS)
  2. BEVACIZUMAB. [Concomitant]
     Active Substance: BEVACIZUMAB
     Dosage: UNK, CYCLIC (REINITIATED, CONTINUED FOR 48 CYCLES OVER APPROXIMATELY 2.5 YEARS)
  3. CAPECITABINE. [Concomitant]
     Active Substance: CAPECITABINE
     Indication: COLORECTAL CANCER METASTATIC
     Dosage: 2000 MG/M2, DAILY
  4. BEVACIZUMAB. [Concomitant]
     Active Substance: BEVACIZUMAB
     Indication: COLORECTAL CANCER METASTATIC
     Dosage: 7.5 MG/KG, CYCLIC
  5. OXALIPLATIN 100MG/20ML HOSPIRA [Suspect]
     Active Substance: OXALIPLATIN
     Indication: COLORECTAL CANCER METASTATIC
     Dosage: 130 MG/M2, CYCLIC

REACTIONS (2)
  - Hypersplenism [Recovered/Resolved]
  - Thrombocytopenia [Recovered/Resolved]
